FAERS Safety Report 20776318 (Version 1)
Quarter: 2022Q2

REPORT INFORMATION
  Report Type: Spontaneous
  Country: US (occurrence: None)
  Receive Date: 20220502
  Receipt Date: 20220502
  Transmission Date: 20220721
  Serious: Yes (Hospitalization, Disabling)
  Sender: FDA-Public Use
  Company Number: None

PATIENT
  Age: 32 Year
  Sex: Female
  Weight: 74.84 kg

DRUGS (1)
  1. XANAX [Suspect]
     Active Substance: ALPRAZOLAM
     Indication: Sedation
     Route: 048
     Dates: start: 19830505, end: 19831101

REACTIONS (5)
  - Drug dependence [None]
  - Personal relationship issue [None]
  - Post procedural complication [None]
  - Disability [None]
  - Tremor [None]
